FAERS Safety Report 5496678-4 (Version None)
Quarter: 2007Q4

REPORT INFORMATION
  Report Type: 
  Country: None (occurrence: None)
  Receive Date: 20071025
  Receipt Date: 20070702
  Transmission Date: 20080405
  Serious: No
  Sender: FDA-Public Use
  Company Number: A0661291A

PATIENT
  Age: 69 Year
  Sex: Female

DRUGS (4)
  1. ADVAIR DISKUS 100/50 [Suspect]
     Dosage: 1PUFF TWICE PER DAY
     Route: 055
  2. HYDROCODONE [Concomitant]
  3. FLUTICASONE PROPIONATE [Concomitant]
  4. LYRICA [Concomitant]

REACTIONS (3)
  - GASTRIC DISORDER [None]
  - LEUKOPLAKIA ORAL [None]
  - TONGUE COATED [None]
